FAERS Safety Report 6427440-3 (Version None)
Quarter: 2009Q4

REPORT INFORMATION
  Report Type: 
  Country: None (occurrence: None)
  Receive Date: 20091104
  Receipt Date: 20091023
  Transmission Date: 20100525
  Serious: Yes (Hospitalization)
  Sender: FDA-Public Use
  Company Number: AU-PFIZER INC-2008061325

PATIENT
  Age: 53 Year
  Sex: Female
  Weight: 61 kg

DRUGS (9)
  1. BLINDED *NO SUBJECT DRUG [Suspect]
     Indication: RENAL CELL CARCINOMA
     Dosage: 50 MG, 1X/DAY
     Route: 048
     Dates: start: 20080704, end: 20080717
  2. BLINDED *PLACEBO [Suspect]
     Indication: RENAL CELL CARCINOMA
     Dosage: 50 MG, 1X/DAY
     Route: 048
     Dates: start: 20080704, end: 20080717
  3. BLINDED SUNITINIB MALATE [Suspect]
     Indication: RENAL CELL CARCINOMA
     Dosage: 50 MG, 1X/DAY
     Route: 048
     Dates: start: 20080704, end: 20080717
  4. OMEPRAZOLE [Concomitant]
     Route: 048
     Dates: start: 20070701
  5. TESTOSTERONE [Concomitant]
     Route: 062
     Dates: start: 20050101
  6. NORETHINDRONE ACETATE [Concomitant]
     Dosage: UNK
     Route: 048
     Dates: start: 20050101
  7. ETHANOL [Concomitant]
     Dosage: UNK
     Route: 062
     Dates: start: 20050101
  8. OESTRADIOL [Concomitant]
     Dosage: UNK
     Route: 048
     Dates: start: 20050101
  9. LORAZEPAM [Concomitant]

REACTIONS (10)
  - C-REACTIVE PROTEIN INCREASED [None]
  - HYPONATRAEMIA [None]
  - LIVER FUNCTION TEST ABNORMAL [None]
  - MALAISE [None]
  - NAUSEA [None]
  - NEUTROPENIA [None]
  - PANCYTOPENIA [None]
  - PLATELET COUNT DECREASED [None]
  - PYREXIA [None]
  - VOMITING [None]
